FAERS Safety Report 4847247-8 (Version None)
Quarter: 2005Q4

REPORT INFORMATION
  Report Type: 
  Country: None (occurrence: None)
  Receive Date: 20051207
  Receipt Date: 20051118
  Transmission Date: 20060501
  Serious: Yes (Hospitalization)
  Sender: FDA-Public Use
  Company Number: JP-JPN-A20052840

PATIENT
  Sex: Female

DRUGS (7)
  1. PAXIL [Suspect]
     Indication: DEPRESSION
     Dosage: 10MG PER DAY
     Route: 048
     Dates: start: 20041101
  2. LORCAM [Suspect]
     Dosage: 4MG THREE TIMES PER DAY
     Route: 048
     Dates: start: 20050819, end: 20051115
  3. MYONAL [Suspect]
     Indication: WHIPLASH INJURY
     Dosage: 1TAB THREE TIMES PER DAY
     Route: 048
     Dates: start: 20050819, end: 20051115
  4. LIPITOR [Concomitant]
     Route: 048
     Dates: end: 20051117
  5. GASTROM [Concomitant]
     Dosage: 6G PER DAY
     Route: 048
     Dates: start: 20050819, end: 20051117
  6. DEPAS [Concomitant]
     Indication: INSOMNIA
     Dosage: 2TAB PER DAY
     Route: 048
  7. KENALOG [Concomitant]
     Indication: STOMATITIS
     Route: 061
     Dates: start: 20051121

REACTIONS (7)
  - ALANINE AMINOTRANSFERASE INCREASED [None]
  - ASPARTATE AMINOTRANSFERASE INCREASED [None]
  - BLOOD ALKALINE PHOSPHATASE INCREASED [None]
  - BLOOD LACTATE DEHYDROGENASE INCREASED [None]
  - HEPATIC FUNCTION ABNORMAL [None]
  - MALAISE [None]
  - ROAD TRAFFIC ACCIDENT [None]
